FAERS Safety Report 5362711-3 (Version None)
Quarter: 2007Q2

REPORT INFORMATION
  Report Type: 
  Country: None (occurrence: None)
  Receive Date: 20070619
  Receipt Date: 20070614
  Transmission Date: 20071010
  Serious: Yes (Hospitalization, Other)
  Sender: FDA-Public Use
  Company Number: JP-ABBOTT-01P-087-0112984-00

PATIENT
  Sex: Male

DRUGS (27)
  1. NORVIR [Suspect]
     Indication: HIV INFECTION
     Route: 048
     Dates: start: 19991101, end: 20001108
  2. NORVIR [Suspect]
     Route: 048
     Dates: start: 20001116, end: 20040408
  3. NORVIR [Suspect]
     Route: 048
     Dates: start: 20040409
  4. LAMIVUDINE [Suspect]
     Indication: HIV INFECTION
     Route: 048
     Dates: end: 19991001
  5. STAVUDINE [Suspect]
     Indication: HIV INFECTION
     Route: 048
     Dates: end: 19991001
  6. SAQUINAVIR [Suspect]
     Indication: HIV INFECTION
     Route: 048
     Dates: end: 19991001
  7. ABACAVIR SULFATE [Suspect]
     Indication: HIV INFECTION
     Route: 048
     Dates: start: 19991001, end: 20001108
  8. ABACAVIR SULFATE [Suspect]
     Route: 048
     Dates: start: 20011101, end: 20021108
  9. ABACAVIR SULFATE [Suspect]
     Route: 048
     Dates: start: 20021116, end: 20070316
  10. AMPRENAVIR [Suspect]
     Indication: HIV INFECTION
     Route: 048
     Dates: start: 19991101, end: 20001108
  11. AMPRENAVIR [Suspect]
     Route: 048
     Dates: start: 20001116, end: 20040311
  12. EFAVIRENZ [Suspect]
     Indication: HIV INFECTION
     Route: 048
     Dates: start: 19991001, end: 20001108
  13. EFAVIRENZ [Suspect]
     Route: 048
     Dates: start: 20011101, end: 20021108
  14. EFAVIRENZ [Suspect]
     Route: 048
     Dates: start: 20021116, end: 20070316
  15. ATAZANAVIR SULFATE [Suspect]
     Indication: DRUG USE FOR UNKNOWN INDICATION
     Dates: start: 20040312, end: 20040408
  16. ATAZANAVIR SULFATE [Suspect]
     Route: 048
     Dates: start: 20040409
  17. BACTRIM [Concomitant]
     Indication: ANTIFUNGAL PROPHYLAXIS
     Route: 048
     Dates: start: 19991101, end: 20001108
  18. BACTRIM [Concomitant]
     Route: 048
     Dates: start: 20001116
  19. ALLOPURINOL [Concomitant]
     Indication: HYPERURICAEMIA
     Route: 048
     Dates: start: 19991101, end: 20001108
  20. ALLOPURINOL [Concomitant]
     Route: 048
     Dates: start: 20001116, end: 20040905
  21. AZITHROMYCIN HYDRATE [Concomitant]
     Indication: BACTERIAL INFECTION
     Route: 048
     Dates: start: 19991101, end: 20000712
  22. ATORVASTATIN CALCIUM [Concomitant]
     Indication: DRUG USE FOR UNKNOWN INDICATION
     Dates: start: 20041203
  23. ATORVASTATIN CALCIUM [Concomitant]
     Dates: start: 20010628, end: 20010918
  24. ATORVASTATIN CALCIUM [Concomitant]
     Dates: start: 20010919, end: 20040507
  25. ATORVASTATIN CALCIUM [Concomitant]
     Dates: start: 20040508, end: 20040910
  26. RANITIDINE [Concomitant]
     Indication: PROPHYLAXIS AGAINST GASTROINTESTINAL ULCER
     Dates: start: 20020723, end: 20040806
  27. ABACAVIR W/LAMIVUDINE [Concomitant]
     Indication: HIV INFECTION
     Route: 048
     Dates: start: 20070317

REACTIONS (4)
  - GAMMA-GLUTAMYLTRANSFERASE INCREASED [None]
  - HEPATIC STEATOSIS [None]
  - HYPERLIPIDAEMIA [None]
  - LYMPHOMA [None]
